FAERS Safety Report 4402598-6 (Version None)
Quarter: 2004Q2

REPORT INFORMATION
  Report Type: 
  Country: None (occurrence: None)
  Receive Date: 20040618
  Receipt Date: 20040401
  Transmission Date: 20050107
  Serious: No
  Sender: FDA-Public Use
  Company Number: US-JNJFOC-20040400207

PATIENT
  Age: 29 Year
  Sex: Female
  Weight: 68.0396 kg

DRUGS (2)
  1. ORTHO EVRA [Suspect]
     Indication: CONTRACEPTION
     Dosage: SEE IMAGE
     Route: 062
     Dates: start: 20030101, end: 20030101
  2. ORTHO EVRA [Suspect]
     Indication: CONTRACEPTION
     Dosage: SEE IMAGE
     Route: 062
     Dates: start: 20040229, end: 20040321

REACTIONS (3)
  - MENSTRUATION IRREGULAR [None]
  - NAUSEA [None]
  - VAGINITIS BACTERIAL [None]
